FAERS Safety Report 9478958 (Version 1)
Quarter: 2013Q3

REPORT INFORMATION
  Report Type: Spontaneous
  Country: US (occurrence: None)
  Receive Date: 20130823
  Receipt Date: 20130823
  Transmission Date: 20140515
  Serious: Yes (Other)
  Sender: FDA-Public Use
  Company Number: AUR-APL-2013-06873

PATIENT
  Age: 23 Year
  Sex: Male

DRUGS (7)
  1. FLUOXETINE (FLUOXETINE) [Suspect]
     Indication: PRODUCT USED FOR UNKNOWN INDICATION
  2. DIAZEPAM [Suspect]
     Indication: DEPRESSION
     Dosage: AT NIGHT
  3. MIDAZOLAM (MIDAZOLAM) [Suspect]
     Indication: PRODUCT USED FOR UNKNOWN INDICATION
     Dosage: SINGLE
     Route: 042
  4. PROPOFOL [Suspect]
     Indication: PRODUCT USED FOR UNKNOWN INDICATION
     Dosage: SINGLE
  5. FENTANYL [Suspect]
     Indication: GENERAL ANAESTHESIA
     Dosage: SINGLE
  6. REMIFENTANIL [Suspect]
     Indication: MAINTENANCE OF ANAESTHESIA
  7. BUPIVACAINE [Suspect]
     Indication: GENERAL ANAESTHESIA

REACTIONS (7)
  - Drug interaction [None]
  - Serotonin syndrome [None]
  - Movement disorder [None]
  - Muscle rigidity [None]
  - Toxicity to various agents [None]
  - Hyperthermia malignant [None]
  - Neuroleptic malignant syndrome [None]
